FAERS Safety Report 5754707-4 (Version None)
Quarter: 2008Q2

REPORT INFORMATION
  Report Type: 
  Country: None (occurrence: None)
  Receive Date: 20080527
  Receipt Date: 20080506
  Transmission Date: 20081010
  Serious: Yes (Hospitalization)
  Sender: FDA-Public Use
  Company Number: 2008AL003542

PATIENT
  Age: 12 Year
  Sex: Female

DRUGS (5)
  1. DIGOXIN [Suspect]
     Dosage: 0.125MG DAILY PO
     Route: 048
  2. LASIX [Concomitant]
  3. PULMICORT [Concomitant]
  4. POTASSIUM CHLORIDE [Concomitant]
  5. SILDENAFIL CITRATE [Concomitant]

REACTIONS (5)
  - DIZZINESS [None]
  - DYSPNOEA [None]
  - LETHARGY [None]
  - PALPITATIONS [None]
  - VOMITING [None]
